FAERS Safety Report 6637408-X (Version None)
Quarter: 2010Q1

REPORT INFORMATION
  Report Type: 
  Country: None (occurrence: None)
  Receive Date: 20100316
  Receipt Date: 20100315
  Transmission Date: 20100710
  Serious: Yes (Hospitalization)
  Sender: FDA-Public Use
  Company Number: FR-MERCK-1002FRA00042

PATIENT
  Age: 24 Day
  Sex: Female
  Weight: 2 kg

DRUGS (8)
  1. PRIMAXIN [Suspect]
     Indication: SEPSIS
     Route: 042
  2. PRIMAXIN [Suspect]
     Route: 042
  3. PRIMAXIN [Suspect]
     Indication: MENINGITIS
     Route: 042
  4. PRIMAXIN [Suspect]
     Route: 042
  5. AMOXICILLIN [Concomitant]
     Indication: ESCHERICHIA INFECTION
     Route: 065
  6. CEFOTAXIME SODIUM [Concomitant]
     Indication: ESCHERICHIA INFECTION
     Route: 065
  7. NETILMICIN SULFATE [Concomitant]
     Indication: ESCHERICHIA INFECTION
     Route: 065
  8. AMIKACIN [Concomitant]
     Route: 065

REACTIONS (2)
  - CONVULSION [None]
  - INFECTION [None]
